FAERS Safety Report 4415925-0 (Version None)
Quarter: 2004Q3

REPORT INFORMATION
  Report Type: 
  Country: None (occurrence: None)
  Receive Date: 20040805
  Receipt Date: 20040614
  Transmission Date: 20050211
  Serious: No
  Sender: FDA-Public Use
  Company Number: US-GLAXOSMITHKLINE-A0514793A

PATIENT
  Age: 44 Year
  Sex: Male
  Weight: 113.6 kg

DRUGS (4)
  1. AVANDAMET [Suspect]
     Dosage: .5TAB IN THE MORNING
     Route: 048
     Dates: start: 20040531
  2. CLARINEX [Concomitant]
  3. MAXZIDE-25 [Concomitant]
  4. VIOXX [Concomitant]

REACTIONS (3)
  - ABDOMINAL PAIN [None]
  - DIARRHOEA [None]
  - FLATULENCE [None]
